FAERS Safety Report 10533903 (Version 2)
Quarter: 2015Q1

REPORT INFORMATION
  Report Type: Report from Study
  Country: GB (occurrence: GB)
  Receive Date: 20141022
  Receipt Date: 20150227
  Transmission Date: 20150720
  Serious: Yes (Hospitalization)
  Sender: FDA-Public Use
  Company Number: GB-BAYER-2014-152239

PATIENT
  Age: 52 Year
  Sex: Female

DRUGS (1)
  1. BETAFERON [Suspect]
     Active Substance: INTERFERON BETA-1B
     Indication: MULTIPLE SCLEROSIS
     Dosage: 250 ?G, QOD
     Route: 058

REACTIONS (4)
  - Abdominal pain [Not Recovered/Not Resolved]
  - Abscess [Recovered/Resolved]
  - Myositis [Recovered/Resolved]
  - Muscle atrophy [Recovered/Resolved]

NARRATIVE: CASE EVENT DATE: 201410
